FAERS Safety Report 5871299-X (Version None)
Quarter: 2008Q3

REPORT INFORMATION
  Report Type: 
  Country: None (occurrence: None)
  Receive Date: 20080905
  Receipt Date: 20080805
  Transmission Date: 20090109
  Serious: No
  Sender: FDA-Public Use
  Company Number: US-BAYER-200827948NA

PATIENT
  Sex: Male

DRUGS (6)
  1. CIPRO [Suspect]
     Indication: PROPHYLAXIS
     Dosage: TOTAL DAILY DOSE: 1000 MG
     Route: 048
     Dates: start: 20080611
  2. FLOMAX [Concomitant]
     Indication: BENIGN PROSTATIC HYPERPLASIA
  3. WARFARIN SODIUM [Concomitant]
  4. ALLOPURINOL [Concomitant]
  5. BETA BLOCKER [Concomitant]
  6. ACE INHIBITOR NOS [Concomitant]

REACTIONS (4)
  - GOUT [None]
  - PAIN IN EXTREMITY [None]
  - PLANTAR ERYTHEMA [None]
  - SKIN EXFOLIATION [None]
